FAERS Safety Report 12622057 (Version 1)
Quarter: 2016Q3

REPORT INFORMATION
  Report Type: Spontaneous
  Country: US (occurrence: US)
  Receive Date: 20160804
  Receipt Date: 20160804
  Transmission Date: 20161109
  Serious: Yes (Other)
  Sender: FDA-Public Use
  Company Number: US-BAYER-2016-150398

PATIENT
  Sex: Male

DRUGS (3)
  1. BAYER LOW DOSE [Suspect]
     Active Substance: ASPIRIN
     Indication: HYPERTENSION
  2. BAYER LOW DOSE [Suspect]
     Active Substance: ASPIRIN
     Indication: ARTHRITIS
  3. BAYER LOW DOSE [Suspect]
     Active Substance: ASPIRIN
     Indication: INFLAMMATION
     Dosage: UNK
     Dates: start: 2008

REACTIONS (2)
  - Expired product administered [None]
  - Haematochezia [Recovered/Resolved]

NARRATIVE: CASE EVENT DATE: 2011
